FAERS Safety Report 8862736 (Version 1)
Quarter: 2012Q4

REPORT INFORMATION
  Report Type: 
  Country: US (occurrence: US)
  Receive Date: 20121026
  Receipt Date: 20121026
  Transmission Date: 20130627
  Serious: No
  Sender: FDA-Public Use
  Company Number: US-ALLERGAN-1213332US

PATIENT
  Age: 78 Year
  Sex: Male

DRUGS (13)
  1. ALPHAGAN [Suspect]
     Indication: INCREASED INTRAOCULAR PRESSURE
     Dosage: 2 Gtt, bid
     Route: 047
     Dates: start: 201109
  2. PATADAY [Concomitant]
     Indication: EYE LUBRICATION THERAPY
     Dosage: 1 Gtt, UNK
     Route: 047
  3. PRIMIDONE [Concomitant]
     Indication: ESSENTIAL TREMOR
     Dosage: 100 mg, bid
     Route: 048
  4. INDERAL LA [Concomitant]
     Indication: ESSENTIAL TREMOR
     Dosage: 120 mg, qd
     Route: 048
  5. DEXILANT [Concomitant]
     Indication: GERD
     Dosage: 60 mg, qd
     Route: 048
  6. CELEXA                             /00582602/ [Concomitant]
     Indication: DEPRESSION
     Dosage: 40 mg, qd
     Route: 048
  7. LIPITOR [Concomitant]
     Indication: HYPERCHOLESTEROLEMIA
     Dosage: 40 mg, qhs
     Route: 048
  8. BUMEX [Concomitant]
     Indication: EDEMA
     Dosage: UNK UNK, prn
  9. NTG [Concomitant]
     Indication: CHEST PAIN
     Dosage: UNK UNK, prn
     Route: 060
  10. NTG [Concomitant]
     Indication: SHORTNESS OF BREATH
  11. GABAPENTIN [Concomitant]
     Indication: NERVE PAIN
     Dosage: 600 mg, bid
     Route: 048
  12. HYDROCODONE [Concomitant]
     Indication: BACK PAIN
     Dosage: UNK UNK, prn
     Route: 048
  13. FLEXERIL                           /00428402/ [Concomitant]
     Indication: BACK PAIN
     Dosage: 10 mg, prn
     Route: 048

REACTIONS (2)
  - Dry eye [Unknown]
  - Eye irritation [Recovering/Resolving]
